FAERS Safety Report 9983902 (Version 1)
Quarter: 2014Q1

REPORT INFORMATION
  Report Type: Report from Study
  Country: US (occurrence: US)
  Receive Date: 20140307
  Receipt Date: 20140307
  Transmission Date: 20141002
  Serious: No
  Sender: FDA-Public Use
  Company Number: US-ABBVIE-13P-163-1184055-00

PATIENT
  Age: 58 Year
  Sex: Female
  Weight: 52.21 kg

DRUGS (4)
  1. HUMIRA [Suspect]
     Indication: PSORIATIC ARTHROPATHY
     Dates: start: 20131023
  2. CELEBREX [Concomitant]
     Indication: PSORIATIC ARTHROPATHY
     Dates: start: 2010
  3. UNKNOWN MEDICATION [Concomitant]
     Indication: THYROID DISORDER
  4. UNKNOWN MEDICATION [Concomitant]
     Indication: PAIN

REACTIONS (5)
  - Pain [Not Recovered/Not Resolved]
  - Neck pain [Not Recovered/Not Resolved]
  - Arthralgia [Not Recovered/Not Resolved]
  - Drug ineffective [Not Recovered/Not Resolved]
  - Arthralgia [Not Recovered/Not Resolved]
